FAERS Safety Report 17307631 (Version 11)
Quarter: 2022Q2

REPORT INFORMATION
  Report Type: Spontaneous
  Country: US (occurrence: US)
  Receive Date: 20200123
  Receipt Date: 20220407
  Transmission Date: 20220720
  Serious: No
  Sender: FDA-Public Use
  Company Number: US-PFIZER INC-2019389626

PATIENT
  Age: 77 Year
  Sex: Female

DRUGS (2)
  1. LYRICA [Suspect]
     Active Substance: PREGABALIN
     Indication: Neck pain
     Dosage: 100 MG, TWICE A DAY
     Route: 048
  2. LYRICA [Suspect]
     Active Substance: PREGABALIN
     Indication: Neuropathy peripheral
     Dosage: 100 MG, THREE TIMES A DAY (1 CAPSULE ORALLY THREE TIMES A DAY)
     Route: 048

REACTIONS (7)
  - Dysgraphia [Unknown]
  - Impaired driving ability [Unknown]
  - Malaise [Unknown]
  - Onychalgia [Unknown]
  - Nervousness [Unknown]
  - Arterial occlusive disease [Unknown]
  - Hypoacusis [Unknown]
